FAERS Safety Report 17568858 (Version 1)
Quarter: 2020Q1

REPORT INFORMATION
  Report Type: Report from Study
  Country: IT (occurrence: IT)
  Receive Date: 20200321
  Receipt Date: 20200321
  Transmission Date: 20200409
  Serious: Yes (Hospitalization)
  Sender: FDA-Public Use
  Company Number: IT-TEVA-2020-IT-1204998

PATIENT
  Age: 66 Year
  Sex: Male

DRUGS (3)
  1. DELTACORTENE 25 MG COMPRESSE [Concomitant]
     Active Substance: PREDNISONE
     Dosage: 1 DOSAGE FORMS
  2. OXATOMIDE [Concomitant]
     Active Substance: OXATOMIDE
  3. CIPROFLOXACIN. [Suspect]
     Active Substance: CIPROFLOXACIN
     Indication: LYME DISEASE
     Dosage: 2 DOSAGE FORMS
     Route: 048
     Dates: start: 20191221, end: 20191228

REACTIONS (1)
  - Dermatitis allergic [Unknown]

NARRATIVE: CASE EVENT DATE: 20191223
